FAERS Safety Report 12288829 (Version 1)
Quarter: 2016Q2

REPORT INFORMATION
  Report Type: Spontaneous
  Country: IE (occurrence: IE)
  Receive Date: 20160421
  Receipt Date: 20160421
  Transmission Date: 20160815
  Serious: Yes (Other)
  Sender: FDA-Public Use
  Company Number: IE-BAXTER-2016BAX019482

PATIENT
  Sex: Male

DRUGS (6)
  1. WATER FOR INJECTION [Suspect]
     Active Substance: WATER
     Indication: MEDICATION DILUTION
     Route: 042
     Dates: start: 201603
  2. WATER FOR INJECTION [Suspect]
     Active Substance: WATER
     Route: 042
     Dates: start: 20160408
  3. SODIUM CHLORIDE 0.9% W/V INTRAVENOUS INFUSION BP [Suspect]
     Active Substance: SODIUM CHLORIDE
     Indication: MEDICATION DILUTION
     Route: 042
     Dates: start: 201603
  4. REMICADE [Suspect]
     Active Substance: INFLIXIMAB
     Route: 042
     Dates: start: 20160408
  5. REMICADE [Suspect]
     Active Substance: INFLIXIMAB
     Indication: PRODUCT USED FOR UNKNOWN INDICATION
     Route: 042
     Dates: start: 201603
  6. SODIUM CHLORIDE 0.9% W/V INTRAVENOUS INFUSION BP [Suspect]
     Active Substance: SODIUM CHLORIDE
     Route: 042
     Dates: start: 20160408

REACTIONS (5)
  - Pneumonia [Unknown]
  - Vomiting [Unknown]
  - Chills [Unknown]
  - Nausea [Unknown]
  - Malaise [Unknown]

NARRATIVE: CASE EVENT DATE: 201603
